FAERS Safety Report 9306095 (Version 1)
Quarter: 2013Q2

REPORT INFORMATION
  Report Type: Spontaneous
  Country: NZ (occurrence: NZ)
  Receive Date: 20130523
  Receipt Date: 20130523
  Transmission Date: 20140414
  Serious: Yes (Hospitalization, Other)
  Sender: FDA-Public Use
  Company Number: NZ-ELI_LILLY_AND_COMPANY-NZ201305005166

PATIENT
  Age: 16 Year
  Sex: Male

DRUGS (3)
  1. OLANZAPINE [Suspect]
     Dosage: 15 MG, QD
     Route: 048
     Dates: start: 20120124
  2. FLUOXETINE HYDROCHLORIDE [Suspect]
     Indication: OBSESSIVE THOUGHTS
     Dosage: 20 MG, QD
     Route: 048
     Dates: start: 20120809
  3. CLOZAPINE [Concomitant]
     Indication: PSYCHOTIC DISORDER
     Dosage: 375 MG, QD
     Route: 048
     Dates: start: 20120412, end: 20121113

REACTIONS (2)
  - Myocarditis [Not Recovered/Not Resolved]
  - Pericarditis [Not Recovered/Not Resolved]
